FAERS Safety Report 14842334 (Version 1)
Quarter: 2018Q2

REPORT INFORMATION
  Report Type: Spontaneous
  Country: BR (occurrence: BR)
  Receive Date: 20180503
  Receipt Date: 20180503
  Transmission Date: 20180711
  Serious: Yes (Hospitalization, Other)
  Sender: FDA-Public Use
  Company Number: BR-JNJFOC-20180433657

PATIENT
  Age: 7 Month
  Sex: Male

DRUGS (2)
  1. RISPERDAL [Suspect]
     Active Substance: RISPERIDONE
     Indication: DELUSION
     Route: 065
  2. RISPERDAL [Suspect]
     Active Substance: RISPERIDONE
     Indication: DELIRIUM
     Route: 065

REACTIONS (6)
  - Bradycardia [Recovered/Resolved]
  - Drug dose omission [Unknown]
  - Apnoea [Recovered/Resolved]
  - Seizure [Recovered/Resolved]
  - Product use issue [Unknown]
  - Off label use [Unknown]
